FAERS Safety Report 6856595-1 (Version None)
Quarter: 2010Q3

REPORT INFORMATION
  Report Type: 
  Country: None (occurrence: None)
  Receive Date: 20100719
  Receipt Date: 20100708
  Transmission Date: 20110219
  Serious: Yes (Other)
  Sender: FDA-Public Use
  Company Number: GB-PFIZER INC-2010085662

PATIENT
  Sex: Male

DRUGS (2)
  1. LINEZOLID [Suspect]
  2. CUBICIN [Suspect]
     Indication: ENTEROCOCCAL INFECTION
     Dosage: 8 MG/KG, UNK

REACTIONS (9)
  - AORTIC VALVE STENOSIS [None]
  - ARTHRITIS BACTERIAL [None]
  - ARTHRITIS INFECTIVE [None]
  - BLOOD DISORDER [None]
  - ENDOCARDITIS [None]
  - MINIMUM INHIBITORY CONCENTRATION [None]
  - PATHOGEN RESISTANCE [None]
  - PLATELET COUNT DECREASED [None]
  - THROMBOCYTOPENIA [None]
